FAERS Safety Report 4272517-4 (Version None)
Quarter: 2004Q1

REPORT INFORMATION
  Report Type: 
  Country: None (occurrence: None)
  Receive Date: 20040114
  Receipt Date: 20040106
  Transmission Date: 20041129
  Serious: Yes (Death, Hospitalization)
  Sender: FDA-Public Use
  Company Number: 200400219

PATIENT
  Age: 11 Month
  Sex: Male

DRUGS (2)
  1. CHILDREN'S IBUPROFEN [Suspect]
     Indication: PYREXIA
     Dosage: PO
     Route: 048
  2. CHILDRENS TYLENOL PRODUCT (ACETAMINOPHEN) [Concomitant]

REACTIONS (4)
  - CYANOSIS [None]
  - GASTRIC HAEMORRHAGE [None]
  - PNEUMONIA [None]
  - PYREXIA [None]
